FAERS Safety Report 20741157 (Version 1)
Quarter: 2022Q2

REPORT INFORMATION
  Report Type: Spontaneous
  Country: US (occurrence: US)
  Receive Date: 20220422
  Receipt Date: 20220422
  Transmission Date: 20220721
  Serious: No
  Sender: FDA-Public Use
  Company Number: US-PFIZER INC-2021177567

PATIENT
  Age: 68 Year
  Sex: Female

DRUGS (2)
  1. RUXIENCE [Suspect]
     Active Substance: RITUXIMAB-PVVR
     Indication: Chronic inflammatory demyelinating polyradiculoneuropathy
     Dosage: UNK
     Dates: start: 20210224
  2. RUXIENCE [Suspect]
     Active Substance: RITUXIMAB-PVVR
     Indication: Anti-myelin-associated glycoprotein associated polyneuropathy
     Dosage: UNK
     Dates: start: 20210310

REACTIONS (4)
  - Swelling [Unknown]
  - Tenderness [Unknown]
  - Weight increased [Unknown]
  - Off label use [Unknown]
